FAERS Safety Report 17420791 (Version 1)
Quarter: 2020Q1

REPORT INFORMATION
  Report Type: Spontaneous
  Country: US (occurrence: US)
  Receive Date: 20200214
  Receipt Date: 20200214
  Transmission Date: 20200409
  Serious: No
  Sender: FDA-Public Use
  Company Number: US-PFIZER INC-2020064734

PATIENT
  Age: 76 Year
  Sex: Male
  Weight: 79.38 kg

DRUGS (1)
  1. VYNDAQEL [Suspect]
     Active Substance: TAFAMIDIS MEGLUMINE
     Indication: AMYLOIDOSIS
     Dosage: 80 MG, DAILY (20 MG PER CAPSULE 4 CAPSULES EVERY DAY BY MOUTH AT ONE TIME)
     Route: 048

REACTIONS (5)
  - Product size issue [Unknown]
  - Condition aggravated [Unknown]
  - Gastrooesophageal reflux disease [Unknown]
  - Product use in unapproved indication [Unknown]
  - Off label use [Unknown]
